FAERS Safety Report 25755639 (Version 3)
Quarter: 2025Q4

REPORT INFORMATION
  Report Type: Spontaneous
  Country: EU (occurrence: EU)
  Receive Date: 20250903
  Receipt Date: 20251022
  Transmission Date: 20260118
  Serious: Yes (Hospitalization, Other)
  Sender: REGENERON
  Company Number: None

PATIENT
  Age: 65 Year
  Sex: Male

DRUGS (1)
  1. CEMIPLIMAB [Suspect]
     Active Substance: CEMIPLIMAB
     Indication: Lung adenocarcinoma
     Dosage: 350 MG OGNI 3 SETTIMANE
     Route: 042
     Dates: start: 20241227, end: 20250312

REACTIONS (3)
  - Haemophagocytic lymphohistiocytosis [Unknown]
  - Neutropenia [Unknown]
  - Hyperpyrexia [Recovered/Resolved]

NARRATIVE: CASE EVENT DATE: 20250504
